FAERS Safety Report 12422674 (Version 2)
Quarter: 2016Q2

REPORT INFORMATION
  Report Type: Spontaneous
  Country: NL (occurrence: NL)
  Receive Date: 20160601
  Receipt Date: 20160624
  Transmission Date: 20160815
  Serious: Yes (Hospitalization)
  Sender: FDA-Public Use
  Company Number: NL-ASTRAZENECA-2016SE57089

PATIENT
  Age: 30914 Day
  Sex: Female

DRUGS (14)
  1. INSULINE [Concomitant]
     Active Substance: INSULIN NOS
  2. FERROFUMRARATA [Concomitant]
  3. TOLBUTAMIDE. [Concomitant]
     Active Substance: TOLBUTAMIDE
  4. ERLOTINIB [Concomitant]
     Active Substance: ERLOTINIB
  5. FUROSEMIDE. [Concomitant]
     Active Substance: FUROSEMIDE
  6. OXAZEPAM. [Concomitant]
     Active Substance: OXAZEPAM
  7. FOLIUMACID [Concomitant]
  8. CHEMOTHERAPY [Concomitant]
     Active Substance: UNSPECIFIED INGREDIENT
  9. CLOPIDOGREL [Concomitant]
     Active Substance: CLOPIDOGREL BISULFATE
  10. CODEINE [Concomitant]
     Active Substance: CODEINE
  11. METFORMINE [Concomitant]
     Active Substance: METFORMIN HYDROCHLORIDE
  12. METOCLOPRAMIDE. [Concomitant]
     Active Substance: METOCLOPRAMIDE
  13. SPIRONOLACTONE. [Concomitant]
     Active Substance: SPIRONOLACTONE
  14. TAGRISSO [Suspect]
     Active Substance: OSIMERTINIB
     Indication: DISEASE PROGRESSION
     Route: 048
     Dates: start: 201507

REACTIONS (2)
  - Cardiac failure [Recovered/Resolved]
  - Hyponatraemia [Unknown]

NARRATIVE: CASE EVENT DATE: 20160517
